FAERS Safety Report 14140160 (Version 1)
Quarter: 2017Q4

REPORT INFORMATION
  Report Type: Spontaneous
  Country: US (occurrence: US)
  Receive Date: 20171030
  Receipt Date: 20171030
  Transmission Date: 20180321
  Serious: No
  Sender: FDA-Public Use
  Company Number: US-ENDO PHARMACEUTICALS INC-2017-004557

PATIENT
  Age: 54 Year
  Sex: Male
  Weight: 92.99 kg

DRUGS (6)
  1. AMITRIPTYLINE HCL [Suspect]
     Active Substance: AMITRIPTYLINE
     Indication: NEURALGIA
     Dosage: 25 MG, DAILY
     Route: 065
     Dates: start: 20170315
  2. LYRICA [Concomitant]
     Active Substance: PREGABALIN
     Indication: DIABETIC NEUROPATHY
  3. LYRICA [Concomitant]
     Active Substance: PREGABALIN
     Indication: KNEE ARTHROPLASTY
  4. AMITRIPTYLINE HCL [Suspect]
     Active Substance: AMITRIPTYLINE
     Indication: KNEE ARTHROPLASTY
  5. LYRICA [Concomitant]
     Active Substance: PREGABALIN
     Indication: NEUROPATHY PERIPHERAL
  6. AMITRIPTYLINE HCL [Suspect]
     Active Substance: AMITRIPTYLINE
     Indication: NEUROPATHY PERIPHERAL

REACTIONS (1)
  - Off label use [Unknown]

NARRATIVE: CASE EVENT DATE: 20170315
